FAERS Safety Report 16474660 (Version 1)
Quarter: 2019Q2

REPORT INFORMATION
  Report Type: Spontaneous
  Country: US (occurrence: US)
  Receive Date: 20190625
  Receipt Date: 20190625
  Transmission Date: 20190711
  Serious: No
  Sender: FDA-Public Use
  Company Number: US-ENDO PHARMACEUTICALS INC-2019-105232

PATIENT
  Sex: Male

DRUGS (1)
  1. ZOLPIDEM TARTRATE. [Suspect]
     Active Substance: ZOLPIDEM TARTRATE
     Indication: SLEEP DISORDER
     Dosage: 3.5 MG (1 TABLET IF AWAKE DURING NIGHTLY SLEEP), UNK
     Route: 065

REACTIONS (2)
  - Product taste abnormal [Not Recovered/Not Resolved]
  - Sleep disorder [Unknown]
